FAERS Safety Report 16006966 (Version 1)
Quarter: 2019Q1

REPORT INFORMATION
  Report Type: Spontaneous
  Country: US (occurrence: US)
  Receive Date: 20190226
  Receipt Date: 20190226
  Transmission Date: 20190418
  Serious: No
  Sender: FDA-Public Use
  Company Number: PHEH2019US008002

PATIENT
  Age: 60 Year
  Sex: Female
  Weight: 72.58 kg

DRUGS (8)
  1. IMITREX [Suspect]
     Active Substance: SUMATRIPTAN SUCCINATE
     Indication: PRODUCT USED FOR UNKNOWN INDICATION
     Dosage: UNK
     Route: 065
  2. CELECOXIB. [Suspect]
     Active Substance: CELECOXIB
     Indication: KNEE OPERATION
     Dosage: 200 MG, BID
     Route: 065
     Dates: start: 20170928
  3. HYDROMORPHONE HCL [Concomitant]
     Active Substance: HYDROMORPHONE HYDROCHLORIDE
     Indication: PAIN
     Dosage: 2 MG, UNK
     Route: 065
     Dates: start: 20170928, end: 20171001
  4. FAMOTIDINE. [Concomitant]
     Active Substance: FAMOTIDINE
     Indication: ULCER
     Dosage: UNK
     Route: 065
     Dates: start: 20150806
  5. XARELTO [Concomitant]
     Active Substance: RIVAROXABAN
     Indication: COAGULOPATHY
     Dosage: 10 MG, QD
     Route: 048
     Dates: start: 20170928
  6. SUMATRIPTAN. [Suspect]
     Active Substance: SUMATRIPTAN
     Dosage: 50MG TABLET, TAKE 1 EVERY TWO HOURS BY MOUTH AS NEEDED MAXIMUM 200MG IN 24 HOURS
     Route: 065
  7. FAMOTIDINE. [Concomitant]
     Active Substance: FAMOTIDINE
     Dosage: 20 MG, BID
     Route: 065
     Dates: start: 20170928
  8. TRIAMTERENE+HYDROCHLOROTHIAZIDE SANDOZ [Suspect]
     Active Substance: HYDROCHLOROTHIAZIDE\TRIAMTERENE
     Indication: FLUID RETENTION
     Dosage: 37.5/25MG, 0.5-1 EVERY OTHER DAY
     Route: 065

REACTIONS (2)
  - Erythema [Recovering/Resolving]
  - Chest discomfort [Unknown]

NARRATIVE: CASE EVENT DATE: 20171023
